FAERS Safety Report 10273065 (Version 1)
Quarter: 2014Q2

REPORT INFORMATION
  Report Type: Spontaneous
  Country: US (occurrence: None)
  Receive Date: 20140627
  Receipt Date: 20140627
  Transmission Date: 20141212
  Serious: Yes (Hospitalization)
  Sender: FDA-Public Use
  Company Number: None

PATIENT
  Age: 58 Year
  Sex: Male
  Weight: 95.2 kg

DRUGS (15)
  1. RIBAVIRIN [Suspect]
     Indication: HEPATITIS C
     Route: 048
     Dates: start: 20140401
  2. SOFOSBUVIR [Suspect]
     Indication: HEPATITIS C
     Route: 048
     Dates: start: 20140401
  3. RIFAXIMIN [Concomitant]
  4. OMEPRAZOLE [Concomitant]
  5. ACTIGALL [Concomitant]
  6. CIPROFLOXACIN [Concomitant]
  7. NOVOLOG [Concomitant]
  8. MICANZOLE [Concomitant]
  9. MIDRODRINE [Concomitant]
  10. LANTUS [Concomitant]
  11. ZOFRAN [Concomitant]
  12. LASIX [Concomitant]
  13. ALDACTONE [Concomitant]
  14. LACTULOSE [Concomitant]
  15. GLUCOSE 40% GEL [Concomitant]

REACTIONS (2)
  - Hyperglycaemia [None]
  - Diabetes mellitus inadequate control [None]
